FAERS Safety Report 4980639-5 (Version None)
Quarter: 2006Q2

REPORT INFORMATION
  Report Type: 
  Country: None (occurrence: None)
  Receive Date: 20060424
  Receipt Date: 20060410
  Transmission Date: 20061013
  Serious: Yes (Life-Threatening)
  Sender: FDA-Public Use
  Company Number: FI-ROCHE-443694

PATIENT
  Age: 59 Year
  Sex: Female

DRUGS (3)
  1. CAPECITABINE [Suspect]
     Indication: BREAST CANCER
     Dosage: DAY 1-15 EVERY 3 WEEKS AS PER PROTOCOL.
     Route: 048
     Dates: start: 20050404
  2. DOCETAXEL [Suspect]
     Indication: BREAST CANCER
     Dosage: ON DAY 1 OF A 3 WEEK CYCLE AS PER PROTOCOL.
     Route: 042
     Dates: start: 20050404
  3. DEXAMETHASONE [Suspect]
     Indication: ANTIALLERGIC THERAPY
     Dosage: DAILY DOSE REPORTED AS 7.5 MG X 2
     Route: 048
     Dates: start: 20060403, end: 20060406

REACTIONS (2)
  - DIABETES MELLITUS [None]
  - DIABETIC KETOACIDOSIS [None]
